FAERS Safety Report 4891212-1 (Version None)
Quarter: 2006Q1

REPORT INFORMATION
  Report Type: 
  Country: None (occurrence: None)
  Receive Date: 20060125
  Receipt Date: 20051021
  Transmission Date: 20060701
  Serious: Yes (Hospitalization)
  Sender: FDA-Public Use
  Company Number: US-MERCK-0510USA08545

PATIENT
  Age: 69 Year
  Sex: Male

DRUGS (5)
  1. VIOXX [Suspect]
     Indication: PAIN
     Route: 048
     Dates: start: 20040527, end: 20040501
  2. VIOXX [Suspect]
     Route: 048
     Dates: start: 20040501, end: 20040701
  3. DICLOFENAC [Concomitant]
     Route: 065
  4. [THERAPY UNSPECIFIED] [Concomitant]
     Route: 065
  5. [THERAPY UNSPECIFIED] [Concomitant]
     Route: 065

REACTIONS (13)
  - ABDOMINAL PAIN [None]
  - CELLULITIS [None]
  - FEELING ABNORMAL [None]
  - HYDRONEPHROSIS [None]
  - HYPERTENSION [None]
  - LIP ULCERATION [None]
  - MUSCULOSKELETAL CHEST PAIN [None]
  - NEPHROLITHIASIS [None]
  - PAIN IN EXTREMITY [None]
  - RENAL FAILURE CHRONIC [None]
  - ROTATOR CUFF SYNDROME [None]
  - UPPER RESPIRATORY TRACT INFECTION [None]
  - VERTIGO [None]
